FAERS Safety Report 5281077-0 (Version None)
Quarter: 2007Q1

REPORT INFORMATION
  Report Type: 
  Country: None (occurrence: None)
  Receive Date: 20070323
  Receipt Date: 20070228
  Transmission Date: 20070707
  Serious: Yes (Death)
  Sender: FDA-Public Use
  Company Number: 154078ISR

PATIENT
  Age: 29 Year
  Sex: Male

DRUGS (14)
  1. CARBOPLATIN [Suspect]
     Indication: TESTICULAR CANCER METASTATIC
     Dosage: 1250 MG (1250 MG, 1 IN 1 D) ??
     Dates: start: 20061010, end: 20061013
  2. ETOPOSIDE [Suspect]
     Indication: TESTICULAR CANCER METASTATIC
     Dosage: 950 MG (950 MG, 1 IN 1 D) ORAL
     Route: 048
     Dates: start: 20061010, end: 20061013
  3. CYCLOPHOSPHAMIDE [Suspect]
     Indication: TESTICULAR CANCER METASTATIC
  4. CHLORHEXIDINE [Concomitant]
  5. CHLORPROMAZINE HYDROCHLORIDE [Concomitant]
  6. MESNA [Concomitant]
  7. ONDANSETRON HCL [Concomitant]
  8. PARACETAMOL [Concomitant]
  9. APREPITANT [Concomitant]
  10. DEXAMETHASONE [Concomitant]
  11. MAGNESIUM [Concomitant]
  12. NYSTATIN [Concomitant]
  13. DIAZEPAM [Concomitant]
  14. CEFTAZIDIME PENTAHYDRATE [Concomitant]

REACTIONS (9)
  - CARDIAC ARREST [None]
  - CARDIAC TAMPONADE [None]
  - DERMAL CYST [None]
  - HEART RATE INCREASED [None]
  - HYPOTENSION [None]
  - METASTASIS [None]
  - PERICARDITIS [None]
  - RENAL FAILURE ACUTE [None]
  - RENAL TUBULAR DISORDER [None]
